FAERS Safety Report 5089680-8 (Version None)
Quarter: 2006Q3

REPORT INFORMATION
  Report Type: 
  Country: None (occurrence: None)
  Receive Date: 20060828
  Receipt Date: 20060822
  Transmission Date: 20061208
  Serious: Yes (Hospitalization)
  Sender: FDA-Public Use
  Company Number: SE-JNJFOC-20060502703

PATIENT
  Age: 74 Year
  Sex: Female

DRUGS (14)
  1. REMICADE [Suspect]
     Indication: RHEUMATOID ARTHRITIS
     Route: 042
  2. ACTRAPRID [Concomitant]
     Route: 065
  3. DETRUSITOL [Concomitant]
     Route: 065
  4. LANSOPRAZOLE [Concomitant]
     Route: 065
  5. INSULATARD NPH HUMAN [Concomitant]
     Route: 065
  6. KALCIPOS [Concomitant]
     Route: 065
  7. NITROMEX [Concomitant]
     Route: 065
  8. FOLACIN [Concomitant]
     Route: 065
  9. CHLOROMYCETIN [Concomitant]
     Route: 065
  10. GLUCOPHAGE [Concomitant]
     Route: 065
  11. IMPUGAN [Concomitant]
     Route: 065
  12. DAONIL [Concomitant]
     Route: 065
  13. DEXOFEN [Concomitant]
     Route: 065
  14. OPNOL [Concomitant]
     Route: 065

REACTIONS (1)
  - LYMPHOMA [None]
